FAERS Safety Report 6052644-1 (Version None)
Quarter: 2009Q1

REPORT INFORMATION
  Report Type: 
  Country: None (occurrence: None)
  Receive Date: 20090127
  Receipt Date: 20090119
  Transmission Date: 20090719
  Serious: Yes (Hospitalization)
  Sender: FDA-Public Use
  Company Number: FR-BAXTER-2009BH000886

PATIENT
  Age: 48 Year
  Sex: Male

DRUGS (10)
  1. ENDOXAN BAXTER [Suspect]
     Indication: WEGENER'S GRANULOMATOSIS
     Route: 042
     Dates: start: 20081114, end: 20081114
  2. CORTANCYL [Concomitant]
  3. DIFFU K [Concomitant]
  4. ESOMEPRAZOLE [Concomitant]
  5. IDEOS [Concomitant]
  6. ACTONEL [Concomitant]
  7. ATORVASTATIN CALCIUM [Concomitant]
  8. ACETYLSALICYLIC ACID SRT [Concomitant]
  9. BACTRIM [Concomitant]
  10. IMOVANE [Concomitant]

REACTIONS (1)
  - ACUTE CORONARY SYNDROME [None]
